FAERS Safety Report 7844431-6 (Version None)
Quarter: 2011Q4

REPORT INFORMATION
  Report Type: 
  Country: None (occurrence: None)
  Receive Date: 20111025
  Receipt Date: 20111017
  Transmission Date: 20120403
  Serious: Yes (Life-Threatening, Hospitalization, Disabling, Other)
  Sender: FDA-Public Use
  Company Number: US-MERCK-1108USA03377

PATIENT
  Age: 89 Year
  Sex: Female
  Weight: 50 kg

DRUGS (1)
  1. JANUMET [Suspect]
     Indication: DIABETES MELLITUS
     Route: 048
     Dates: start: 20090520, end: 20110609

REACTIONS (3)
  - PANCREATITIS [None]
  - HEPATITIS [None]
  - ATRIAL FIBRILLATION [None]
